FAERS Safety Report 6533308-4 (Version None)
Quarter: 2010Q1

REPORT INFORMATION
  Report Type: 
  Country: None (occurrence: None)
  Receive Date: 20100111
  Receipt Date: 20100104
  Transmission Date: 20100710
  Serious: Yes (Hospitalization, Other)
  Sender: FDA-Public Use
  Company Number: US-SANOFI-AVENTIS-A03200904569

PATIENT
  Sex: Male
  Weight: 90.91 kg

DRUGS (8)
  1. CLOPIDOGREL BISULFATE [Suspect]
     Indication: CORONARY ARTERY DISEASE
     Dosage: UNIT DOSE: 75 MG
     Route: 048
     Dates: start: 20080401
  2. CLOPIDOGREL BISULFATE [Suspect]
     Dosage: UNIT DOSE: 75 MG
     Route: 048
     Dates: start: 20080401
  3. CLOPIDOGREL BISULFATE [Suspect]
     Route: 048
     Dates: start: 20071101, end: 20071101
  4. CLOPIDOGREL BISULFATE [Suspect]
     Route: 048
     Dates: start: 20071101, end: 20071101
  5. ATORVASTATIN [Concomitant]
  6. FUROSEMIDE [Concomitant]
  7. ESOMEPRAZOLE SODIUM (NEXIUM) [Concomitant]
  8. VALSARTAN [Concomitant]

REACTIONS (4)
  - ATRIAL FIBRILLATION [None]
  - CEREBROVASCULAR ACCIDENT [None]
  - CORONARY ARTERY STENOSIS [None]
  - MYOCARDIAL INFARCTION [None]
